FAERS Safety Report 4900694-8 (Version None)
Quarter: 2006Q1

REPORT INFORMATION
  Report Type: 
  Country: None (occurrence: None)
  Receive Date: 20060201
  Receipt Date: 20060120
  Transmission Date: 20060701
  Serious: Yes (Hospitalization, Other)
  Sender: FDA-Public Use
  Company Number: KII-2006-0020872

PATIENT
  Age: 44 Year
  Sex: Male

DRUGS (8)
  1. OXYCODONE HCL [Suspect]
     Dosage: ORAL
     Route: 048
  2. HYDROCODONE W/ACETAMINOPHEN (PARACETAMOL, HYDROCODONE BITARTRATE) [Suspect]
     Dosage: ORAL
     Route: 048
  3. TEMAZEPAM [Suspect]
     Dosage: ORAL
     Route: 048
  4. DIAZEPAM [Suspect]
     Dosage: ORAL
     Route: 048
  5. FLUOXETINE [Suspect]
     Dosage: ORAL
     Route: 048
  6. COCAINE (COCAINE) [Suspect]
     Indication: INTENTIONAL DRUG MISUSE
  7. ANTIPSYCHOTICS ( ) [Suspect]
  8. OPIOIDS ( ) [Suspect]

REACTIONS (7)
  - ASPIRATION [None]
  - COMA [None]
  - DRUG ABUSER [None]
  - LOSS OF CONSCIOUSNESS [None]
  - PYREXIA [None]
  - RESPIRATORY RATE INCREASED [None]
  - TACHYCARDIA [None]
